FAERS Safety Report 11697221 (Version 1)
Quarter: 2015Q4

REPORT INFORMATION
  Report Type: Spontaneous
  Country: ES (occurrence: ES)
  Receive Date: 20151104
  Receipt Date: 20151104
  Transmission Date: 20160304
  Serious: Yes (Other)
  Sender: FDA-Public Use
  Company Number: ES-REGENERON PHARMACEUTICALS, INC.-2015-13526

PATIENT

DRUGS (1)
  1. EYLEA [Suspect]
     Active Substance: AFLIBERCEPT
     Indication: PRODUCT USED FOR UNKNOWN INDICATION
     Dosage: INJECTED IN BOTH EYES

REACTIONS (4)
  - Blindness [Not Recovered/Not Resolved]
  - Multiple use of single-use product [Unknown]
  - Retinal disorder [Unknown]
  - Endophthalmitis [Unknown]
